FAERS Safety Report 10099898 (Version 1)
Quarter: 2014Q2

REPORT INFORMATION
  Report Type: Spontaneous
  Country: CN (occurrence: CN)
  Receive Date: 20140423
  Receipt Date: 20140423
  Transmission Date: 20141212
  Serious: Yes (Other)
  Sender: FDA-Public Use
  Company Number: CN-PFIZER INC-2014109724

PATIENT
  Age: 78 Year
  Sex: Female

DRUGS (2)
  1. DIFLUCAN [Suspect]
     Indication: INFECTION
     Dosage: 0.2 G, 1X/DAY
     Route: 041
     Dates: start: 20130718, end: 20130726
  2. LEVOFLOXACIN/SODIUM CHLORIDE [Concomitant]
     Indication: INFECTION
     Dosage: 0.5 G, 1X/DAY
     Dates: start: 20130723, end: 20130726

REACTIONS (1)
  - Delirium [Recovered/Resolved]
